FAERS Safety Report 17828498 (Version 2)
Quarter: 2020Q3

REPORT INFORMATION
  Report Type: Spontaneous
  Country: US (occurrence: US)
  Receive Date: 20200527
  Receipt Date: 20200728
  Transmission Date: 20201102
  Serious: No
  Sender: FDA-Public Use
  Company Number: US-PFIZER INC-2018435849

PATIENT
  Age: 64 Year
  Sex: Male

DRUGS (1)
  1. LYRICA [Suspect]
     Active Substance: PREGABALIN
     Indication: POLYNEUROPATHY
     Dosage: 200 MG, 3X/DAY
     Route: 048

REACTIONS (2)
  - Road traffic accident [Unknown]
  - Pain in extremity [Unknown]
